FAERS Safety Report 8043096-0 (Version None)
Quarter: 2012Q1

REPORT INFORMATION
  Report Type: 
  Country: None (occurrence: None)
  Receive Date: 20120112
  Receipt Date: 20120105
  Transmission Date: 20120608
  Serious: Yes (Other)
  Sender: FDA-Public Use
  Company Number: CHPA2012US000611

PATIENT
  Sex: Male

DRUGS (1)
  1. BENEFIBER W/ WHEAT DEXTRIN [Suspect]
     Indication: CONSTIPATION
     Dosage: UNK , UNK
     Route: 048
     Dates: start: 20110101, end: 20110101

REACTIONS (5)
  - HEAD INJURY [None]
  - FALL [None]
  - PERIORBITAL HAEMATOMA [None]
  - LACERATION [None]
  - DRUG INEFFECTIVE FOR UNAPPROVED INDICATION [None]
